FAERS Safety Report 16722785 (Version 2)
Quarter: 2019Q4

REPORT INFORMATION
  Report Type: Report from Study
  Country: US (occurrence: US)
  Receive Date: 20190821
  Receipt Date: 20191130
  Transmission Date: 20200122
  Serious: Yes (Other)
  Sender: FDA-Public Use
  Company Number: US-ROCHE-2385301

PATIENT
  Age: 65 Year
  Sex: Female

DRUGS (1)
  1. OCREVUS [Suspect]
     Active Substance: OCRELIZUMAB
     Indication: MULTIPLE SCLEROSIS
     Dosage: FORM STRENGTH: 300MG/10ML, NEXT DOSE RECEIVED IN FEB/2018?ONGOING: YES
     Route: 042
     Dates: start: 201708

REACTIONS (4)
  - Dermatitis [Unknown]
  - Intervertebral disc compression [Unknown]
  - Paraesthesia [Unknown]
  - Psoriasis [Unknown]

NARRATIVE: CASE EVENT DATE: 201905
